FAERS Safety Report 9124078 (Version 2)
Quarter: 2013Q2

REPORT INFORMATION
  Report Type: Spontaneous
  Country: BE (occurrence: BE)
  Receive Date: 20130227
  Receipt Date: 20130409
  Transmission Date: 20140414
  Serious: Yes (Other)
  Sender: FDA-Public Use
  Company Number: BE-AMGEN-BELSP2013012720

PATIENT
  Age: 68 Year
  Sex: Female
  Weight: 82 kg

DRUGS (8)
  1. PROLIA [Suspect]
     Indication: OSTEOPOROSIS POSTMENOPAUSAL
     Dosage: 60 MG, Q6MO
     Route: 058
     Dates: start: 20121119
  2. ALENDRONATE [Suspect]
     Dosage: 35 MG, QWK
     Dates: start: 2001, end: 2009
  3. ACTONEL [Suspect]
     Dosage: UNK
     Dates: start: 2009, end: 2012
  4. PREDNISOLONE [Suspect]
     Dosage: 3 MG, QD
  5. ENBREL [Concomitant]
     Indication: VASCULITIS
  6. ORENCIA [Concomitant]
     Indication: RHEUMATOID ARTHRITIS
     Dosage: 750 MG, UNK
  7. DOLCIDIUM                          /00003801/ [Concomitant]
  8. ALGOSTASE [Concomitant]

REACTIONS (5)
  - Stress fracture [Unknown]
  - Bone marrow oedema [Unknown]
  - Pubis fracture [Unknown]
  - Atypical femur fracture [Recovered/Resolved]
  - Bone disorder [Unknown]
